FAERS Safety Report 6410118-X (Version None)
Quarter: 2009Q4

REPORT INFORMATION
  Report Type: 
  Country: None (occurrence: None)
  Receive Date: 20091022
  Receipt Date: 20091009
  Transmission Date: 20100525
  Serious: Yes (Life-Threatening)
  Sender: FDA-Public Use
  Company Number: DE-NICOBRDEVP-2009-08516

PATIENT
  Sex: Female
  Weight: 170 kg

DRUGS (1)
  1. KENTERA (WATSON LABORATORIES) [Suspect]
     Indication: HYPERTONIC BLADDER
     Dosage: 1 PATCH 2X WEEKLY
     Route: 062
     Dates: start: 20090922, end: 20091009

REACTIONS (12)
  - BLOOD GLUCOSE DECREASED [None]
  - BLOOD PRESSURE DECREASED [None]
  - CHILLS [None]
  - GASTROINTESTINAL HYPOMOTILITY [None]
  - GASTROINTESTINAL SOUNDS ABNORMAL [None]
  - HEART RATE DECREASED [None]
  - HYPOGLYCAEMIA [None]
  - HYPOTENSION [None]
  - IMPAIRED GASTRIC EMPTYING [None]
  - NAUSEA [None]
  - URINARY RETENTION [None]
  - VISUAL IMPAIRMENT [None]
